FAERS Safety Report 6359884-2 (Version None)
Quarter: 2009Q3

REPORT INFORMATION
  Report Type: 
  Country: None (occurrence: None)
  Receive Date: 20090917
  Receipt Date: 20090909
  Transmission Date: 20100115
  Serious: Yes (Other)
  Sender: FDA-Public Use
  Company Number: US-AMGEN-QUU363777

PATIENT
  Sex: Male

DRUGS (2)
  1. ENBREL [Suspect]
     Indication: PSORIATIC ARTHROPATHY
     Route: 058
     Dates: start: 20070611
  2. ENBREL [Suspect]
     Indication: PSORIASIS

REACTIONS (4)
  - CONGENITAL CYSTIC KIDNEY DISEASE [None]
  - HEPATIC CYST [None]
  - NEPHROLITHIASIS [None]
  - PSORIASIS [None]
